FAERS Safety Report 7096553-8 (Version None)
Quarter: 2010Q4

REPORT INFORMATION
  Report Type: 
  Country: None (occurrence: None)
  Receive Date: 20101111
  Receipt Date: 20101103
  Transmission Date: 20110411
  Serious: Yes (Hospitalization)
  Sender: FDA-Public Use
  Company Number: B0646170A

PATIENT
  Age: 48 Year
  Sex: Female

DRUGS (1)
  1. SUMATRIPTAN SUCCINATE [Suspect]
     Indication: MIGRAINE
     Route: 065
     Dates: start: 19990101, end: 20100414

REACTIONS (2)
  - ARTERIOSCLEROSIS [None]
  - MUSCLE SPASMS [None]
